FAERS Safety Report 11038027 (Version 1)
Quarter: 2015Q2

REPORT INFORMATION
  Report Type: Other
  Country: GB (occurrence: GB)
  Receive Date: 20150416
  Receipt Date: 20150416
  Transmission Date: 20150821
  Serious: Yes (Disabling)
  Sender: FDA-Public Use
  Company Number: GB-MYLANLABS-2015M1011199

PATIENT

DRUGS (12)
  1. TERBINAFINE [Suspect]
     Active Substance: TERBINAFINE
     Dosage: UNK
     Dates: start: 20150309
  2. BISOPROLOL [Concomitant]
     Active Substance: BISOPROLOL
     Dosage: 1 DF, QD
     Dates: start: 20140915
  3. LIQUIFILM TEARS [Concomitant]
     Dosage: 1 GTT, UNK (1-2 DROPS = 1 GTT AS NEEDED)
     Dates: start: 20140915
  4. DERMOL                             /01330701/ [Concomitant]
     Dosage: UNK (USE AS DIRECTED)
     Dates: start: 20140915
  5. LOSEC [Concomitant]
     Active Substance: OMEPRAZOLE
     Dosage: 1 DF, QD
     Dates: start: 20140915
  6. AMOROLFINE [Concomitant]
     Active Substance: AMOROLFINE
     Dosage: UNK (APPLY AS DIRECTED)
     Dates: start: 20150325
  7. GLYCERYL TRINITRATE [Concomitant]
     Active Substance: NITROGLYCERIN
     Dosage: 1 DF, UNK (ONE PUFF = 1DF AS NEEDED)
     Dates: start: 20140915
  8. LAXIDO                             /06401201/ [Concomitant]
     Active Substance: POLYETHYLENE GLYCOL 3350\POTASSIUM CHLORIDE\SODIUM BICARBONATE\SODIUM CHLORIDE
     Dosage: 1 DF, BID
     Dates: start: 20140915
  9. SIMVASTATIN. [Concomitant]
     Active Substance: SIMVASTATIN
     Dosage: 1 DF, QD (AT NIGHT)
     Dates: start: 20140915
  10. CODEINE PHOSPHATE [Concomitant]
     Active Substance: CODEINE PHOSPHATE
     Dosage: 1 DF, QID
     Dates: start: 20140915
  11. HYOSCINE BUTYLBROMIDE [Concomitant]
     Active Substance: BUTYLSCOPOLAMINE
     Indication: ABDOMINAL PAIN
     Dosage: 1 DF, UNK (TAKE ONE 4 TIMES/DAY AS NECESSARY (PRN) FOR ABDOMINAL PAIN)
     Dates: start: 20140915
  12. PARACETAMOL [Concomitant]
     Active Substance: ACETAMINOPHEN
     Dosage: 2 DF, QID
     Dates: start: 20140915

REACTIONS (3)
  - Decreased appetite [Unknown]
  - Nausea [Recovered/Resolved]
  - Back pain [Recovering/Resolving]

NARRATIVE: CASE EVENT DATE: 20150325
